FAERS Safety Report 7683206-8 (Version None)
Quarter: 2011Q3

REPORT INFORMATION
  Report Type: 
  Country: None (occurrence: None)
  Receive Date: 20110815
  Receipt Date: 20110805
  Transmission Date: 20111222
  Serious: Yes (Other)
  Sender: FDA-Public Use
  Company Number: US-AMGEN-USASP2011033587

PATIENT
  Age: 79 Year
  Sex: Male
  Weight: 73.016 kg

DRUGS (16)
  1. DRONABINOL [Concomitant]
  2. MULTI-VITAMINS [Concomitant]
  3. PROCRIT [Suspect]
     Indication: PRODUCT USED FOR UNKNOWN INDICATION
     Dosage: UNK
  4. FERROUS SULFATE TAB [Concomitant]
  5. OXYCODONE HCL [Concomitant]
  6. FOLIC ACID [Concomitant]
  7. OMEPRAZOLE [Concomitant]
  8. ARANESP [Suspect]
     Indication: ANAEMIA OF MALIGNANT DISEASE
     Dosage: UNK
     Dates: start: 20101223, end: 20110615
  9. PREDNISONE [Concomitant]
  10. ASPIRIN [Concomitant]
  11. ATENOLOL AND CHLORTHALIDONE [Concomitant]
  12. DIAZEPAM [Concomitant]
  13. COLCHICINE [Concomitant]
  14. LEVOTHYROXINE SODIUM [Concomitant]
  15. CYANOCOBALAMIN [Concomitant]
  16. FENTANYL [Concomitant]

REACTIONS (3)
  - ANTI-ERYTHROPOIETIN ANTIBODY POSITIVE [None]
  - GOUT [None]
  - BONE MARROW FAILURE [None]
